FAERS Safety Report 5648206-8 (Version None)
Quarter: 2008Q1

REPORT INFORMATION
  Report Type: 
  Country: None (occurrence: None)
  Receive Date: 20080229
  Receipt Date: 20080215
  Transmission Date: 20080703
  Serious: Yes (Hospitalization)
  Sender: FDA-Public Use
  Company Number: SPV1-2008-00351

PATIENT
  Age: 41 Year
  Sex: Female
  Weight: 52.2 kg

DRUGS (5)
  1. ADDERALL XR 30 [Suspect]
     Indication: ATTENTION DEFICIT/HYPERACTIVITY DISORDER
     Dosage: 30 MG, 1X/DAY;QD, ORAL
     Route: 048
     Dates: start: 20070101, end: 20080201
  2. RISPERDAL [Concomitant]
  3. TRAZODONE HCL [Concomitant]
  4. GEODON (ZIPRASIDONE MESILATE) [Concomitant]
  5. LAMICTAL [Concomitant]

REACTIONS (6)
  - AGGRESSION [None]
  - AMNESIA [None]
  - MOOD ALTERED [None]
  - OVERDOSE [None]
  - PSYCHOTIC DISORDER [None]
  - RENAL FAILURE [None]
